FAERS Safety Report 19426572 (Version 2)
Quarter: 2021Q2

REPORT INFORMATION
  Report Type: Spontaneous
  Country: IN (occurrence: IN)
  Receive Date: 20210616
  Receipt Date: 20210622
  Transmission Date: 20210717
  Serious: Yes (Other)
  Sender: FDA-Public Use
  Company Number: IN-UCBSA-2021029444

PATIENT
  Age: 27 Year
  Sex: Female

DRUGS (6)
  1. PHENYTOIN. [Suspect]
     Active Substance: PHENYTOIN
     Indication: GENERALISED TONIC-CLONIC SEIZURE
     Dosage: 800 MILLIGRAMS
     Route: 042
  2. MAGNESIUM SULFAT [Suspect]
     Active Substance: MAGNESIUM SULFATE
     Indication: SEIZURE
     Dosage: UNKNOWN DOSE
  3. LEVETIRACETAM. [Suspect]
     Active Substance: LEVETIRACETAM
     Indication: GENERALISED TONIC-CLONIC SEIZURE
     Dosage: 3 GRAMS PER DAY
  4. PHENYTOIN. [Suspect]
     Active Substance: PHENYTOIN
     Dosage: 100 MILLIGRAM, 3X/DAY (TID)
     Route: 042
  5. VALPROATE [Suspect]
     Active Substance: VALPROIC ACID
     Dosage: 200 MILLIGRAM, 3X/DAY (TID)
  6. VALPROATE [Suspect]
     Active Substance: VALPROIC ACID
     Indication: GENERALISED TONIC-CLONIC SEIZURE
     Dosage: 500 MILLIGRAM, 3X/DAY (TID)

REACTIONS (3)
  - Maternal exposure during pregnancy [Unknown]
  - Premature delivery [Unknown]
  - Multiple-drug resistance [Unknown]
